FAERS Safety Report 17330120 (Version 7)
Quarter: 2020Q3

REPORT INFORMATION
  Report Type: Report from Study
  Country: US (occurrence: US)
  Receive Date: 20200128
  Receipt Date: 20200924
  Transmission Date: 20201102
  Serious: Yes (Hospitalization)
  Sender: FDA-Public Use
  Company Number: US-EISAI MEDICAL RESEARCH-EC-2020-068336

PATIENT
  Age: 60 Year
  Sex: Male

DRUGS (7)
  1. LENVIMA [Suspect]
     Active Substance: LENVATINIB
     Indication: HEPATOCELLULAR CARCINOMA
     Route: 048
     Dates: start: 201811, end: 20200112
  2. LENVIMA [Suspect]
     Active Substance: LENVATINIB
     Route: 048
     Dates: start: 20200714, end: 20200914
  3. LENVIMA [Suspect]
     Active Substance: LENVATINIB
     Route: 048
     Dates: start: 20200306, end: 20200410
  4. AMLODIPINE [Concomitant]
     Active Substance: AMLODIPINE BESYLATE
     Route: 065
  5. LENVIMA [Suspect]
     Active Substance: LENVATINIB
     Route: 048
     Dates: start: 20200515, end: 2020
  6. LACTULOSE. [Suspect]
     Active Substance: LACTULOSE
     Indication: PRODUCT USED FOR UNKNOWN INDICATION
     Route: 065
  7. LISINOPRIL. [Concomitant]
     Active Substance: LISINOPRIL
     Route: 065

REACTIONS (17)
  - Mental status changes [Unknown]
  - Hyperammonaemia [Recovered/Resolved]
  - Skin laceration [Recovering/Resolving]
  - Diarrhoea [Unknown]
  - Hypertension [Recovered/Resolved]
  - Arthralgia [Unknown]
  - Abdominal pain [Unknown]
  - Hyponatraemia [Unknown]
  - Dehydration [Unknown]
  - Haemorrhagic stroke [Recovered/Resolved]
  - Fall [Recovering/Resolving]
  - Vomiting [Not Recovered/Not Resolved]
  - Intra-abdominal fluid collection [Not Recovered/Not Resolved]
  - Head injury [Recovered/Resolved]
  - Fatigue [Not Recovered/Not Resolved]
  - Coordination abnormal [Recovering/Resolving]
  - Dry mouth [Not Recovered/Not Resolved]

NARRATIVE: CASE EVENT DATE: 201811
